FAERS Safety Report 4498666-3 (Version None)
Quarter: 2004Q4

REPORT INFORMATION
  Report Type: 
  Country: None (occurrence: None)
  Receive Date: 20041111
  Receipt Date: 20041013
  Transmission Date: 20050328
  Serious: Yes (Death)
  Sender: FDA-Public Use
  Company Number: JP-ABBOTT-04P-087-0277700-00

PATIENT
  Sex: Male
  Weight: 39 kg

DRUGS (6)
  1. KLARICID [Suspect]
     Indication: BRONCHITIS
     Route: 048
     Dates: start: 20040820, end: 20040922
  2. MORPHINE SULFATE [Concomitant]
     Indication: CANCER PAIN
     Route: 048
     Dates: start: 20040524, end: 20041010
  3. PREDNISOLONE [Concomitant]
     Indication: CANCER PAIN
     Route: 048
     Dates: start: 20040820, end: 20041010
  4. REBAMIPIDE [Concomitant]
     Indication: DRUG USE FOR UNKNOWN INDICATION
     Route: 048
     Dates: start: 20040524, end: 20041010
  5. ITRACONAZOLE [Concomitant]
     Indication: DRUG USE FOR UNKNOWN INDICATION
     Route: 048
     Dates: start: 20040820, end: 20040927
  6. IRSOGLADINE MALEATE [Concomitant]
     Indication: DRUG USE FOR UNKNOWN INDICATION
     Route: 048
     Dates: start: 20040820, end: 20040927

REACTIONS (3)
  - HEAD LAG [None]
  - LUNG NEOPLASM MALIGNANT [None]
  - MUSCULAR WEAKNESS [None]
